FAERS Safety Report 14120159 (Version 1)
Quarter: 2017Q4

REPORT INFORMATION
  Report Type: Other
  Country: TR (occurrence: TR)
  Receive Date: 20171024
  Receipt Date: 20171024
  Transmission Date: 20180321
  Serious: Yes (Life-Threatening, Hospitalization)
  Sender: FDA-Public Use
  Company Number: TR-MERCK KGAA-2031265

PATIENT
  Age: 38 Year
  Sex: Female

DRUGS (3)
  1. NOVOTHYROX [Suspect]
     Active Substance: LEVOTHYROXINE SODIUM
     Indication: SUICIDE ATTEMPT
  2. OLANZAPINE. [Suspect]
     Active Substance: OLANZAPINE
  3. CITALOPRAM HYDROBROMIDE. [Suspect]
     Active Substance: CITALOPRAM HYDROBROMIDE

REACTIONS (5)
  - Respiratory failure [Recovered/Resolved]
  - Hyperthyroidism [None]
  - Suicide attempt [None]
  - Toxicity to various agents [Recovered/Resolved]
  - Overdose [Recovered/Resolved]
